FAERS Safety Report 17618902 (Version 1)
Quarter: 2020Q2

REPORT INFORMATION
  Report Type: Spontaneous
  Country: US (occurrence: US)
  Receive Date: 20200403
  Receipt Date: 20200403
  Transmission Date: 20200713
  Serious: Yes (Hospitalization)
  Sender: FDA-Public Use
  Company Number: US-DENDREON PHARMACEUTICAL LLC-2020DEN000117

PATIENT

DRUGS (7)
  1. ASPIRIN [ACETYLSALICYLIC ACID] [Concomitant]
     Active Substance: ASPIRIN
  2. ATORVASTATIN [Concomitant]
     Active Substance: ATORVASTATIN
  3. ALFUZOSIN [Concomitant]
     Active Substance: ALFUZOSIN
  4. FAMOTIDINE. [Concomitant]
     Active Substance: FAMOTIDINE
  5. TAMSULOSIN [Concomitant]
     Active Substance: TAMSULOSIN
  6. METFORMIN [Concomitant]
     Active Substance: METFORMIN HYDROCHLORIDE
  7. PROVENGE [Suspect]
     Active Substance: SIPULEUCEL-T
     Indication: PROSTATE CANCER METASTATIC
     Dosage: DOSE #1
     Route: 042
     Dates: start: 20200320, end: 20200320

REACTIONS (1)
  - Renal failure [Recovered/Resolved]

NARRATIVE: CASE EVENT DATE: 20200323
